FAERS Safety Report 12784343 (Version 1)
Quarter: 2016Q3

REPORT INFORMATION
  Report Type: Spontaneous
  Country: DK (occurrence: DK)
  Receive Date: 20160927
  Receipt Date: 20160927
  Transmission Date: 20161109
  Serious: Yes (Other)
  Sender: FDA-Public Use
  Company Number: DK-BEH-200814444

PATIENT
  Age: 11 Year
  Sex: Male
  Weight: 40 kg

DRUGS (5)
  1. MERONEM [Concomitant]
     Active Substance: MEROPENEM
     Dates: start: 20081101
  2. CIPROXIN [Concomitant]
     Active Substance: CIPROFLOXACIN
     Dates: start: 20081101
  3. IMMUNGLOBULIN CSL BEHRING [Suspect]
     Active Substance: HUMAN IMMUNOGLOBULIN G
     Indication: BLOOD IMMUNOGLOBULIN G DECREASED
     Dosage: DAILY DOSE QUANTITY: 400, DAILY DOSE UNIT: MG/KG
     Route: 042
     Dates: start: 20081126, end: 20081126
  4. LOSEC [Concomitant]
     Active Substance: OMEPRAZOLE
  5. MORPHINE [Concomitant]
     Active Substance: MORPHINE
     Dates: start: 20081101

REACTIONS (3)
  - Blood pressure decreased [Recovered/Resolved]
  - Anaphylactoid reaction [Recovered/Resolved]
  - Body temperature increased [Recovered/Resolved]

NARRATIVE: CASE EVENT DATE: 20081126
